FAERS Safety Report 9165517 (Version 2)
Quarter: 2013Q1

REPORT INFORMATION
  Report Type: Spontaneous
  Country: US (occurrence: None)
  Receive Date: 20130228
  Receipt Date: 20130305
  Transmission Date: 20140127
  Serious: Yes (Other)
  Sender: FDA-Public Use
  Company Number: JPI-P-029959

PATIENT
  Age: 71 Year
  Sex: Female
  Weight: 88.45 kg

DRUGS (2)
  1. XYREM (500 MILLIGRAM/MILLILITERS, SOLUTION) (SODIUM OXYBATE) [Suspect]
     Indication: CATAPLEXY
     Dosage: 4.5 GM (2.25 GM, 2 IN 1 D), ORAL
     Route: 048
     Dates: start: 20040629
  2. MODAFINIL [Concomitant]

REACTIONS (3)
  - Deafness [None]
  - Vaginal mucosal blistering [None]
  - Vulvovaginal dryness [None]
